FAERS Safety Report 22266501 (Version 1)
Quarter: 2023Q2

REPORT INFORMATION
  Report Type: Spontaneous
  Country: NL (occurrence: NL)
  Receive Date: 20230428
  Receipt Date: 20230428
  Transmission Date: 20230721
  Serious: Yes (Other)
  Sender: FDA-Public Use
  Company Number: None

PATIENT
  Sex: Male
  Weight: 81 kg

DRUGS (3)
  1. NIFEDIPINE [Suspect]
     Active Substance: NIFEDIPINE
     Indication: Hypertension
     Dosage: 1 DOSAGE FORMS DAILY; 1X PER DAY 1 PIECE, BRAND NAME NOT SPECIFIED, MGA
     Route: 065
     Dates: start: 20230201, end: 20230209
  2. VIAGRA [Concomitant]
     Active Substance: SILDENAFIL CITRATE
     Indication: Product used for unknown indication
     Route: 065
  3. ASPIRIN [Concomitant]
     Active Substance: ASPIRIN
     Indication: Product used for unknown indication
     Dosage: BRAND NAME NOT SPECIFIED
     Route: 065

REACTIONS (7)
  - Erectile dysfunction [Unknown]
  - Burning sensation [Recovering/Resolving]
  - Feeling hot [Unknown]
  - Gynaecomastia [Unknown]
  - Product substitution issue [Unknown]
  - Myalgia [Recovering/Resolving]
  - Loss of libido [Unknown]
